FAERS Safety Report 5234473-1 (Version None)
Quarter: 2007Q1

REPORT INFORMATION
  Report Type: 
  Country: None (occurrence: None)
  Receive Date: 20070208
  Receipt Date: 20070208
  Transmission Date: 20070707
  Serious: Yes (Other)
  Sender: FDA-Public Use
  Company Number: None

PATIENT
  Sex: Male
  Weight: 90.4926 kg

DRUGS (2)
  1. ZYPREXA [Suspect]
     Indication: AFFECTIVE DISORDER
     Dosage: 20 MG QD PO
     Route: 048
     Dates: start: 20070201
  2. ZYPREXA [Suspect]
     Indication: AFFECTIVE DISORDER
     Dosage: 20 MG QD PO
     Route: 048
     Dates: start: 20060501

REACTIONS (7)
  - CONFUSIONAL STATE [None]
  - DYSGRAPHIA [None]
  - DYSKINESIA [None]
  - POST-TRAUMATIC STRESS DISORDER [None]
  - SPEECH DISORDER [None]
  - SWOLLEN TONGUE [None]
  - TARDIVE DYSKINESIA [None]
